FAERS Safety Report 12334780 (Version 4)
Quarter: 2018Q1

REPORT INFORMATION
  Report Type: Report from Study
  Country: None (occurrence: US)
  Receive Date: 20160504
  Receipt Date: 20180115
  Transmission Date: 20180508
  Serious: Yes (Hospitalization)
  Sender: FDA-Public Use
  Company Number: US-ABBVIE-16P-163-1590166-00

PATIENT
  Age: 75 Year
  Sex: Female
  Weight: 49 kg

DRUGS (44)
  1. DEXAMETHASONE. [Concomitant]
     Active Substance: DEXAMETHASONE
     Indication: PREMEDICATION
     Dates: start: 20160315, end: 20160315
  2. DOCUSATE SODIUM. [Concomitant]
     Active Substance: DOCUSATE SODIUM
     Indication: CONSTIPATION
     Dates: start: 20160311, end: 20160316
  3. FOSAPREPITANT [Concomitant]
     Active Substance: FOSAPREPITANT
     Indication: PREMEDICATION
     Dates: start: 20160315, end: 20160315
  4. PALONSETRON [Concomitant]
     Indication: PREMEDICATION
     Dates: start: 20160315, end: 20160315
  5. RBC TRANSFUSION [Concomitant]
     Indication: ANAEMIA
     Dates: start: 20160310, end: 20160311
  6. DOXORUBICIN [Suspect]
     Active Substance: DOXORUBICIN
     Indication: NON-HODGKIN^S LYMPHOMA
     Dosage: MOST RECENT DOSE(75 MG) PRIOR TO AE ONSET 15/MAR/2016 AT 18:19
     Route: 042
     Dates: start: 20160315
  7. ENOXAPARIN [Concomitant]
     Active Substance: ENOXAPARIN
     Indication: DEEP VEIN THROMBOSIS
     Dates: start: 20160313, end: 20160319
  8. ESZOPICLONE. [Concomitant]
     Active Substance: ESZOPICLONE
     Indication: INSOMNIA
     Dates: start: 20160310, end: 20160318
  9. FUROSEMIDE. [Concomitant]
     Active Substance: FUROSEMIDE
     Indication: PREMEDICATION
     Dates: start: 20160316, end: 20160319
  10. LACTULOSE. [Concomitant]
     Active Substance: LACTULOSE
     Indication: CONSTIPATION
     Dates: start: 20160311, end: 20160313
  11. RASBURICASE [Concomitant]
     Active Substance: RASBURICASE
     Indication: PRODUCT USED FOR UNKNOWN INDICATION
     Dates: start: 20160310, end: 20160310
  12. RITUXIMAB. [Suspect]
     Active Substance: RITUXIMAB
     Indication: NON-HODGKIN^S LYMPHOMA
     Dosage: MOST RECENT DOSE (550 MG) PRIOR TO AE ONSET 15/MAR/2016 AT 13:42
     Route: 042
     Dates: start: 20160315
  13. MAGNESIUM HYDROXIDE. [Concomitant]
     Active Substance: MAGNESIUM HYDROXIDE
     Indication: CONSTIPATION
     Dates: start: 20160314, end: 20160315
  14. PEGFILGRASTIM [Concomitant]
     Active Substance: PEGFILGRASTIM
     Indication: FEBRILE NEUTROPENIA
     Dates: start: 20160317, end: 20160317
  15. CHOLECALCIFEROL [Concomitant]
     Active Substance: CHOLECALCIFEROL
     Indication: OSTEOPOROSIS
  16. IPRATROPIUM BROMIDE. [Concomitant]
     Active Substance: IPRATROPIUM BROMIDE
     Indication: CHRONIC OBSTRUCTIVE PULMONARY DISEASE
     Dates: start: 20160316, end: 20160316
  17. ACETAMINOPHEN. [Concomitant]
     Active Substance: ACETAMINOPHEN
     Indication: PREMEDICATION
     Dates: start: 20160315, end: 20160315
  18. SENNA [Concomitant]
     Active Substance: SENNA LEAF\SENNOSIDES\SENNOSIDES A AND B
     Indication: CONSTIPATION
     Dates: start: 20160313, end: 20160313
  19. FAMCICLOVIR. [Concomitant]
     Active Substance: FAMCICLOVIR
     Indication: PRODUCT USED FOR UNKNOWN INDICATION
     Dates: start: 20160315
  20. ASMANEX [Concomitant]
     Active Substance: MOMETASONE FUROATE
     Indication: DYSPNOEA
     Dates: start: 20160225
  21. NAPROXEN. [Concomitant]
     Active Substance: NAPROXEN
     Indication: MUSCULOSKELETAL PAIN
     Dates: start: 20160225, end: 20160311
  22. LORAZEPAM. [Concomitant]
     Active Substance: LORAZEPAM
     Indication: ANXIETY
     Dates: start: 20160311, end: 20160311
  23. NORMOSOL-R [Concomitant]
     Active Substance: MAGNESIUM CHLORIDE\POTASSIUM CHLORIDE\SODIUM ACETATE ANHYDROUS\SODIUM CHLORIDE\SODIUM GLUCONATE
     Indication: PRODUCT USED FOR UNKNOWN INDICATION
     Dates: start: 20160312, end: 20160312
  24. CYCLOPHOSPHAMIDE. [Suspect]
     Active Substance: CYCLOPHOSPHAMIDE
     Indication: NON-HODGKIN^S LYMPHOMA
     Dosage: MOST RECENT DOSE (1100 MG) PRIOR TO AE ONSET 15/MAR/2016 AT 19:43
     Route: 042
     Dates: start: 20160315
  25. NORMAL SALINE [Concomitant]
     Active Substance: SODIUM CHLORIDE
     Indication: PREMEDICATION
     Dates: start: 20160310, end: 20160318
  26. DIPHENHYDRAMINE. [Concomitant]
     Active Substance: DIPHENHYDRAMINE
     Indication: PREMEDICATION
     Dates: start: 20160315, end: 20160315
  27. OMEPRAZOLE. [Concomitant]
     Active Substance: OMEPRAZOLE
     Indication: PRODUCT USED FOR UNKNOWN INDICATION
     Dates: start: 20160315, end: 20170524
  28. PREDNISONE. [Suspect]
     Active Substance: PREDNISONE
     Indication: NON-HODGKIN^S LYMPHOMA
     Dosage: MOST RECENT DOSE PRIOR TO AE ONSET 19/MAR/2016
     Route: 048
     Dates: start: 20160315
  29. MOMETASONE [Concomitant]
     Active Substance: MOMETASONE
     Indication: DYSPNOEA
     Dates: start: 20160313, end: 20160319
  30. POTASSIUM CHLORIDE. [Concomitant]
     Active Substance: POTASSIUM CHLORIDE
     Indication: PREMEDICATION
     Dates: start: 20160316, end: 20160319
  31. PREGABALIN. [Concomitant]
     Active Substance: PREGABALIN
     Indication: ANALGESIC THERAPY
     Dates: start: 20160310, end: 20160319
  32. FLAGYL [Concomitant]
     Active Substance: METRONIDAZOLE\METRONIDAZOLE HYDROCHLORIDE
     Indication: ENTEROCOLITIS
     Dates: start: 20160315, end: 20160323
  33. ASMANEX [Concomitant]
     Active Substance: MOMETASONE FUROATE
     Indication: CHRONIC OBSTRUCTIVE PULMONARY DISEASE
  34. PANTOPRAZOLE [Concomitant]
     Active Substance: PANTOPRAZOLE
     Indication: PRODUCT USED FOR UNKNOWN INDICATION
     Dates: start: 20160312, end: 20161009
  35. IPRATROPIUM BROMIDE. [Concomitant]
     Active Substance: IPRATROPIUM BROMIDE
     Indication: DYSPNOEA
  36. RBC TRANSFUSION [Concomitant]
     Dates: start: 20160316, end: 20160316
  37. VENETOCLAX. [Suspect]
     Active Substance: VENETOCLAX
     Indication: NON-HODGKIN^S LYMPHOMA
     Dosage: MOST RECENT DOSE (800 MG) PRIOR TO AE ONSET 19/MAR/2016
     Route: 048
     Dates: start: 20160318
  38. VENETOCLAX. [Suspect]
     Active Substance: VENETOCLAX
     Route: 048
     Dates: start: 20160323, end: 20160324
  39. ALLOPURINOL. [Concomitant]
     Active Substance: ALLOPURINOL
     Indication: BLOOD URIC ACID INCREASED
     Dates: start: 20150311, end: 20160319
  40. LEVALBUTEROL. [Concomitant]
     Active Substance: LEVALBUTEROL
     Indication: DYSPNOEA
     Dates: start: 20160316, end: 20160318
  41. VINCRISTINE [Suspect]
     Active Substance: VINCRISTINE
     Indication: NON-HODGKIN^S LYMPHOMA
     Dosage: MOST RECENT DOSE (2 MG) PRIOR TO AE ONSET 15/MAR/2016 AT 19:03
     Route: 042
     Dates: start: 20160315
  42. SALMETEROL [Concomitant]
     Active Substance: SALMETEROL
     Indication: DYSPNOEA
     Dates: start: 20160311, end: 20160319
  43. MIDAZOLAM [Concomitant]
     Active Substance: MIDAZOLAM HYDROCHLORIDE
     Indication: ANXIETY
     Dates: start: 20160302, end: 20160302
  44. MAGNESIUM SULFATE. [Concomitant]
     Active Substance: MAGNESIUM SULFATE
     Indication: PRODUCT USED FOR UNKNOWN INDICATION
     Dates: start: 20160311, end: 20160311

REACTIONS (1)
  - Upper gastrointestinal haemorrhage [Recovered/Resolved]

NARRATIVE: CASE EVENT DATE: 20160321
